FAERS Safety Report 6922719-0 (Version None)
Quarter: 2010Q3

REPORT INFORMATION
  Report Type: 
  Country: None (occurrence: None)
  Receive Date: 20100813
  Receipt Date: 20100810
  Transmission Date: 20110219
  Serious: Yes (Disabling)
  Sender: FDA-Public Use
  Company Number: DE-BRISTOL-MYERS SQUIBB COMPANY-15235518

PATIENT
  Age: 80 Year
  Sex: Male
  Weight: 74 kg

DRUGS (1)
  1. MITOMYCIN [Suspect]
     Indication: BLADDER PAPILLOMA
     Dosage: INJ
     Route: 043
     Dates: start: 20090601

REACTIONS (2)
  - ECZEMA [None]
  - RASH [None]
